FAERS Safety Report 22001643 (Version 1)
Quarter: 2023Q1

REPORT INFORMATION
  Report Type: Spontaneous
  Country: US (occurrence: US)
  Receive Date: 20230216
  Receipt Date: 20230216
  Transmission Date: 20230417
  Serious: No
  Sender: FDA-Public Use
  Company Number: US-Covis Pharma Europe B.V.-2023COV00209

PATIENT

DRUGS (1)
  1. TUDORZA PRESSAIR [Suspect]
     Active Substance: ACLIDINIUM BROMIDE
     Indication: Product used for unknown indication

REACTIONS (1)
  - Incorrect dose administered by device [Unknown]
